FAERS Safety Report 6407884-6 (Version None)
Quarter: 2009Q4

REPORT INFORMATION
  Report Type: 
  Country: None (occurrence: None)
  Receive Date: 20091020
  Receipt Date: 20091014
  Transmission Date: 20100525
  Serious: Yes (Death, Other)
  Sender: FDA-Public Use
  Company Number: US-AMGEN-US369317

PATIENT
  Sex: Male

DRUGS (4)
  1. NPLATE [Suspect]
     Indication: IDIOPATHIC THROMBOCYTOPENIC PURPURA
     Route: 058
     Dates: start: 20090528, end: 20090923
  2. CORTICOSTEROIDS [Concomitant]
     Route: 065
     Dates: start: 20090416
  3. IMMUNOGLOBULINS [Concomitant]
     Route: 042
     Dates: start: 20090416, end: 20090420
  4. IMMUNOGLOBULINS [Concomitant]
     Dates: start: 20090403, end: 20090615

REACTIONS (2)
  - RESPIRATORY FAILURE [None]
  - THROMBOCYTOPENIA [None]
